FAERS Safety Report 9611094 (Version 1)
Quarter: 2013Q4

REPORT INFORMATION
  Report Type: Spontaneous
  Country: US (occurrence: US)
  Receive Date: 20131009
  Receipt Date: 20131009
  Transmission Date: 20140711
  Serious: Yes (Other)
  Sender: FDA-Public Use
  Company Number: US-SAVIENT-2013S1000098

PATIENT
  Sex: Male

DRUGS (2)
  1. KRYSTEXXA [Suspect]
     Indication: GOUTY TOPHUS
     Route: 042
     Dates: start: 20130906
  2. SOLU-MEDROL [Concomitant]
     Indication: ALLERGY PROPHYLAXIS

REACTIONS (1)
  - Infusion related reaction [Unknown]
